FAERS Safety Report 23674866 (Version 1)
Quarter: 2024Q1

REPORT INFORMATION
  Report Type: Spontaneous
  Country: US (occurrence: US)
  Receive Date: 20240326
  Receipt Date: 20240326
  Transmission Date: 20240410
  Serious: No
  Sender: FDA-Public Use
  Company Number: US-ABBVIE-5686198

PATIENT
  Age: 74 Year
  Sex: Female
  Weight: 58 kg

DRUGS (2)
  1. QULIPTA [Suspect]
     Active Substance: ATOGEPANT
     Indication: Migraine prophylaxis
     Dosage: STRENGTH-  60 MG
     Route: 048
     Dates: start: 20240202
  2. QULIPTA [Suspect]
     Active Substance: ATOGEPANT
     Indication: Migraine prophylaxis
     Dosage: STRENGTH-  60 MG
     Route: 048
     Dates: start: 20240123, end: 20240201

REACTIONS (3)
  - Abnormal dreams [Not Recovered/Not Resolved]
  - Taste disorder [Not Recovered/Not Resolved]
  - Drug ineffective [Recovered/Resolved]

NARRATIVE: CASE EVENT DATE: 20240123
